FAERS Safety Report 4335430-X (Version None)
Quarter: 2004Q2

REPORT INFORMATION
  Report Type: 
  Country: None (occurrence: None)
  Receive Date: 20040408
  Receipt Date: 20040408
  Transmission Date: 20050107
  Serious: Yes (Disabling)
  Sender: FDA-Public Use
  Company Number: None

PATIENT
  Sex: Female
  Weight: 58.9676 kg

DRUGS (1)
  1. SCOPOLAMINE DON'T KNOW-PATCH [Suspect]
     Indication: NAUSEA
     Dosage: PATCH 6 HOURS
     Dates: start: 20040309, end: 20040309

REACTIONS (4)
  - APPLICATION SITE ANAESTHESIA [None]
  - DEAFNESS NEUROSENSORY [None]
  - DEAFNESS UNILATERAL [None]
  - TINNITUS [None]
